FAERS Safety Report 7026979-X (Version None)
Quarter: 2010Q4

REPORT INFORMATION
  Report Type: 
  Country: None (occurrence: None)
  Receive Date: 20101004
  Receipt Date: 20100923
  Transmission Date: 20110411
  Serious: Yes (Other)
  Sender: FDA-Public Use
  Company Number: DK-JNJFOC-20100704555

PATIENT
  Sex: Female

DRUGS (2)
  1. REMICADE [Suspect]
     Indication: RHEUMATOID ARTHRITIS
     Route: 042
  2. SALAZOPYRIN [Concomitant]
     Route: 048

REACTIONS (3)
  - BRAIN CANCER METASTATIC [None]
  - EPILEPSY [None]
  - NON-SMALL CELL LUNG CANCER [None]
